FAERS Safety Report 8009088 (Version 3)
Quarter: 2013Q1

REPORT INFORMATION
  Report Type: Spontaneous
  Country: US (occurrence: US)
  Receive Date: 20110624
  Receipt Date: 20130328
  Transmission Date: 20140127
  Serious: No
  Sender: FDA-Public Use
  Company Number: US-ASTRAZENECA-2011SE36628

PATIENT
  Age: 66 Year
  Sex: Female

DRUGS (2)
  1. NEXIUM [Suspect]
     Route: 048
  2. OVER THE COUNTER MEDICATIONS [Concomitant]

REACTIONS (5)
  - Aphagia [Unknown]
  - Hiatus hernia [Unknown]
  - Hernia [Unknown]
  - Malaise [Unknown]
  - Drug dose omission [Unknown]
